FAERS Safety Report 15969001 (Version 1)
Quarter: 2019Q1

REPORT INFORMATION
  Report Type: Spontaneous
  Country: CA (occurrence: CA)
  Receive Date: 20190215
  Receipt Date: 20190215
  Transmission Date: 20190418
  Serious: Yes (Hospitalization)
  Sender: FDA-Public Use
  Company Number: CA-PFIZER INC-2018254458

PATIENT
  Age: 57 Year
  Sex: Female

DRUGS (13)
  1. CARIPUL [Concomitant]
     Active Substance: EPOPROSTENOL
     Dosage: UNK
  2. SPIRONOLACTONE. [Concomitant]
     Active Substance: SPIRONOLACTONE
  3. CALCIUM [Concomitant]
     Active Substance: CALCIUM
  4. FUROSEMIDE. [Concomitant]
     Active Substance: FUROSEMIDE
  5. REVATIO [Suspect]
     Active Substance: SILDENAFIL CITRATE
     Indication: PULMONARY ARTERIAL HYPERTENSION
     Dosage: 20 MG, 3X/DAY
     Route: 048
     Dates: start: 20170117
  6. PANTOPRAZOLE [Concomitant]
     Active Substance: PANTOPRAZOLE
  7. VITAMIN B12 [Concomitant]
     Active Substance: CYANOCOBALAMIN
  8. IRON [Concomitant]
     Active Substance: IRON
  9. OPSUMIT [Suspect]
     Active Substance: MACITENTAN
     Dosage: UNK
     Dates: start: 20180829
  10. DOMPERIDONE [Concomitant]
     Active Substance: DOMPERIDONE
  11. SYNTHROID [Concomitant]
     Active Substance: LEVOTHYROXINE SODIUM
  12. VITAMIN C [Concomitant]
     Active Substance: ASCORBIC ACID
  13. OMNARIS [Concomitant]
     Active Substance: CICLESONIDE
     Dosage: UNK

REACTIONS (2)
  - Dyspnoea [Recovering/Resolving]
  - Influenza [Recovering/Resolving]
